FAERS Safety Report 18466895 (Version 1)
Quarter: 2020Q4

REPORT INFORMATION
  Report Type: Spontaneous
  Country: US (occurrence: US)
  Receive Date: 20201105
  Receipt Date: 20201105
  Transmission Date: 20210114
  Serious: Yes (Other)
  Sender: FDA-Public Use
  Company Number: US-ACCORD-206161

PATIENT
  Age: 65 Year
  Sex: Female
  Weight: 77.75 kg

DRUGS (14)
  1. EFFEXOR XR [Concomitant]
     Active Substance: VENLAFAXINE HYDROCHLORIDE
     Dosage: STRENGTH: 37.5 MG; 1 PO QD
     Dates: start: 20200930
  2. LETROZOLE. [Concomitant]
     Active Substance: LETROZOLE
     Dosage: STRENGTH: 2.5 MG; 1 PO QD
     Dates: start: 20201011
  3. METOPROLOL. [Concomitant]
     Active Substance: METOPROLOL
     Dosage: STRENGTH: 100 MG; 1 PO QD
     Dates: start: 20200706
  4. ROSUVASTATIN. [Concomitant]
     Active Substance: ROSUVASTATIN
     Dosage: STRENGTH: 10 MG; TAKE 1 TABLET BY MOUTH EVERY DAY
     Dates: start: 20200622
  5. DOCETAXEL ACCORD [Suspect]
     Active Substance: DOCETAXEL
     Indication: BREAST CANCER
     Dosage: STRENGTH: 20MG/ML, FOR INJ/USP, 6ML INFUSION
     Route: 042
     Dates: start: 20201006, end: 20201006
  6. BLACK COHOSH [Concomitant]
     Active Substance: BLACK COHOSH
     Dosage: STRENGTH: 540 MG; 1 PO QD
     Dates: start: 20200928
  7. DEXAMETHASONE. [Concomitant]
     Active Substance: DEXAMETHASONE
     Dosage: STRENGTH: 4 MG; 1 PO BID FOR THREE DAYS AFTER CHEMOTHERAPY
     Dates: start: 20201001
  8. PROCHLORPERAZINE. [Concomitant]
     Active Substance: PROCHLORPERAZINE
     Dosage: STRENGTH: 5 MG; 1 TABLET EVERY 6-8HRS AS NEEDED FOR BREAKTHROUGH NAUSEA
     Dates: start: 20201007
  9. ACETYLSALICYLIC ACID [Concomitant]
     Active Substance: ASPIRIN
     Dosage: STRENGTH: 81 MG; 1 PO QD
     Dates: start: 20200706
  10. HYDROCHLOROTHIAZIDE/SPIRONOLACTONE [Concomitant]
     Active Substance: HYDROCHLOROTHIAZIDE\SPIRONOLACTONE
     Dosage: TAKE 1 TABLET BY MOUTH EVERY DAY
     Dates: start: 20191206
  11. ONDANSETRON [Concomitant]
     Active Substance: ONDANSETRON
     Dosage: STRENGTH: 10 MG; TAKE ONE ODT TABLET EVERY 8-12 HOURS AS NEEDED FOR NAUSEA/VOMITING
     Dates: start: 20201001
  12. AMLODIPINE [Concomitant]
     Active Substance: AMLODIPINE BESYLATE
     Dosage: STRENGTH: 10 MG; TAKE 1 TABLET BY MOUTH EVERY DAY
     Dates: start: 20191206
  13. GABAPENTIN. [Concomitant]
     Active Substance: GABAPENTIN
     Dosage: STRENGTH: 100 MG; TAKE ONE TWICE A DAY.
     Dates: start: 20200908
  14. PHENTERMINE. [Concomitant]
     Active Substance: PHENTERMINE
     Dosage: STRENGTH: 37.5 MG; TAKE 1 TABLET BY MOUTH EVERY DAY
     Dates: start: 20200622

REACTIONS (2)
  - Flank pain [Recovered/Resolved]
  - Back pain [Recovered/Resolved]

NARRATIVE: CASE EVENT DATE: 20201006
